FAERS Safety Report 4323471-8 (Version None)
Quarter: 2004Q1

REPORT INFORMATION
  Report Type: 
  Country: None (occurrence: None)
  Receive Date: 20040325
  Receipt Date: 20040317
  Transmission Date: 20041129
  Serious: Yes (Other)
  Sender: FDA-Public Use
  Company Number: CH-BRISTOL-MYERS SQUIBB COMPANY-12534962

PATIENT
  Age: 47 Year
  Sex: Male
  Weight: 47 kg

DRUGS (4)
  1. BLINDED: REBIMASTAT [Concomitant]
     Indication: NON-SMALL CELL LUNG CANCER
     Dates: start: 20020603, end: 20020624
  2. CARBOPLATIN [Suspect]
     Indication: NON-SMALL CELL LUNG CANCER
     Dates: start: 20020603, end: 20020624
  3. TAXOL [Suspect]
     Indication: NON-SMALL CELL LUNG CANCER
     Route: 042
     Dates: start: 20020603, end: 20020624
  4. MS CONTIN [Concomitant]
     Indication: PAIN
     Dates: end: 20020407

REACTIONS (1)
  - DYSPNOEA [None]
